FAERS Safety Report 10074544 (Version 1)
Quarter: 2014Q2

REPORT INFORMATION
  Report Type: Spontaneous
  Country: US (occurrence: US)
  Receive Date: 20140411
  Receipt Date: 20140411
  Transmission Date: 20141212
  Serious: No
  Sender: FDA-Public Use
  Company Number: US-SA-2014SA003172

PATIENT
  Age: 63 Year
  Sex: Male
  Weight: 60.78 kg

DRUGS (6)
  1. ALLEGRA D [Suspect]
     Indication: EAR INFECTION
     Route: 048
     Dates: start: 20140107, end: 20140108
  2. ALLEGRA D [Suspect]
     Indication: EAR INFECTION
     Route: 048
     Dates: start: 20140111, end: 20140112
  3. IPRATROPIUM BROMIDE [Suspect]
     Indication: NASAL CONGESTION
     Dosage: DOSE: 4 TIMES DAILY 2 SPRAYS IN EACH NAUSTRIL
     Route: 065
     Dates: start: 20140102, end: 20140108
  4. AMOXICILLIN/CLAVULANIC ACID [Concomitant]
     Indication: INFECTION
     Route: 048
     Dates: start: 20140102, end: 20140112
  5. TRAMADOL [Concomitant]
     Indication: EAR PAIN
     Route: 065
     Dates: start: 20140102, end: 20140111
  6. MUPIROCIN [Concomitant]
     Dosage: DOSE: APPLY INSIDE NAUSTRIL
     Route: 065
     Dates: start: 20140107

REACTIONS (4)
  - Micturition urgency [Recovered/Resolved]
  - Urinary retention [Recovered/Resolved]
  - Dysuria [Unknown]
  - Pain [Unknown]
